FAERS Safety Report 17231048 (Version 3)
Quarter: 2020Q2

REPORT INFORMATION
  Report Type: Spontaneous
  Country: US (occurrence: US)
  Receive Date: 20200103
  Receipt Date: 20200617
  Transmission Date: 20200713
  Serious: No
  Sender: FDA-Public Use
  Company Number: US-PFIZER INC-2019315636

PATIENT
  Age: 83 Year
  Sex: Female
  Weight: 56.25 kg

DRUGS (2)
  1. LYRICA [Suspect]
     Active Substance: PREGABALIN
     Indication: LUMBAR RADICULOPATHY
  2. LYRICA [Suspect]
     Active Substance: PREGABALIN
     Indication: PAIN
     Dosage: 150 MG, DAILY (ONE IN THE MORNING, 2 IN THE EVENING)
     Dates: start: 201907

REACTIONS (4)
  - Malaise [Unknown]
  - Eye infection [Unknown]
  - Intentional product use issue [Unknown]
  - Intentional dose omission [Unknown]
